FAERS Safety Report 14685400 (Version 1)
Quarter: 2018Q1

REPORT INFORMATION
  Report Type: Report from Study
  Country: DE (occurrence: DE)
  Receive Date: 20180327
  Receipt Date: 20180327
  Transmission Date: 20180509
  Serious: Yes (Hospitalization, Other)
  Sender: FDA-Public Use
  Company Number: DE-SA-2018SA084910

PATIENT
  Age: 51 Year
  Sex: Female

DRUGS (7)
  1. MTX [Suspect]
     Active Substance: METHOTREXATE SODIUM
     Route: 065
  2. REBETOL [Concomitant]
     Active Substance: RIBAVIRIN
  3. LEVOTHYROXINE. [Concomitant]
     Active Substance: LEVOTHYROXINE
  4. LEFLUNOMIDE. [Suspect]
     Active Substance: LEFLUNOMIDE
     Route: 048
     Dates: start: 2015, end: 201512
  5. NEBIVOLOL. [Concomitant]
     Active Substance: NEBIVOLOL
  6. HUMIRA [Suspect]
     Active Substance: ADALIMUMAB
     Indication: RHEUMATOID ARTHRITIS
     Dosage: FREQUENCY: EVERY TWO WEEK
     Route: 058
     Dates: start: 201401, end: 201512
  7. ENOXAPARIN [Concomitant]
     Active Substance: ENOXAPARIN

REACTIONS (2)
  - Hepatitis E [Recovered/Resolved]
  - Diffuse large B-cell lymphoma stage II [Not Recovered/Not Resolved]

NARRATIVE: CASE EVENT DATE: 201509
